FAERS Safety Report 4380187-X (Version None)
Quarter: 2004Q2

REPORT INFORMATION
  Report Type: 
  Country: None (occurrence: None)
  Receive Date: 20040601
  Receipt Date: 20040129
  Transmission Date: 20050107
  Serious: No
  Sender: FDA-Public Use
  Company Number: WAES0306USA00214

PATIENT
  Sex: Female
  Weight: 78.4723 kg

DRUGS (4)
  1. ZETIA [Suspect]
     Indication: LOW DENSITY LIPOPROTEIN INCREASED
     Dosage: 10 MG/DAILY/PO
     Route: 048
  2. LIBRIUM [Concomitant]
  3. PLENDIL [Concomitant]
  4. ATENOLOL [Concomitant]

REACTIONS (2)
  - OEDEMA PERIPHERAL [None]
  - PAIN IN EXTREMITY [None]
